FAERS Safety Report 9554012 (Version 2)
Quarter: 2013Q3

REPORT INFORMATION
  Report Type: Spontaneous
  Country: DK (occurrence: JP)
  Receive Date: 20130925
  Receipt Date: 20130927
  Transmission Date: 20140515
  Serious: No
  Sender: FDA-Public Use
  Company Number: JP-FRI-1000049043

PATIENT
  Sex: Female

DRUGS (3)
  1. LEXAPRO [Suspect]
     Indication: DEPRESSIVE SYMPTOM
     Route: 048
     Dates: start: 20130827
  2. LUNESTA [Concomitant]
     Route: 048
  3. ETIZOLAM [Concomitant]
     Indication: DEPRESSIVE SYMPTOM
     Route: 048

REACTIONS (3)
  - Palpitations [Unknown]
  - Feeling hot [Unknown]
  - Hyperhidrosis [Unknown]
